FAERS Safety Report 26013581 (Version 1)
Quarter: 2025Q4

REPORT INFORMATION
  Report Type: Spontaneous
  Country: GB (occurrence: GB)
  Receive Date: 20251107
  Receipt Date: 20251107
  Transmission Date: 20260118
  Serious: Yes (Death, Hospitalization)
  Sender: NOVO NORDISK
  Company Number: GB-NOVOPROD-1550573

PATIENT
  Age: 53 Year
  Sex: Female

DRUGS (1)
  1. WEGOVY [Suspect]
     Active Substance: SEMAGLUTIDE
     Indication: Weight control
     Dosage: UNK

REACTIONS (4)
  - Dyspnoea [Fatal]
  - Skin discolouration [Fatal]
  - Abdominal pain upper [Fatal]
  - Loss of consciousness [Fatal]
